FAERS Safety Report 18676675 (Version 1)
Quarter: 2020Q4

REPORT INFORMATION
  Report Type: Spontaneous
  Country: FR (occurrence: FR)
  Receive Date: 20201229
  Receipt Date: 20201229
  Transmission Date: 20210114
  Serious: Yes (Death)
  Sender: FDA-Public Use
  Company Number: FR-PFIZER INC-2020506902

PATIENT
  Age: 75 Year
  Sex: Female
  Weight: 54 kg

DRUGS (18)
  1. PRINCI B [PYRIDOXINE HYDROCHLORIDE;THIAMINE MONONITRATE] [Suspect]
     Active Substance: PYRIDOXINE\THIAMINE
     Dosage: UNK, DAILY 3
     Route: 048
  2. LOVENOX [Concomitant]
     Active Substance: ENOXAPARIN SODIUM
     Dosage: 0.4 ML, DAILY
     Route: 058
  3. PANTOPRAZOLE [Concomitant]
     Active Substance: PANTOPRAZOLE
     Dosage: 20 MG, DAILY
     Route: 048
  4. PROLIA [Concomitant]
     Active Substance: DENOSUMAB
     Dosage: 60 MG, (6 MONTH OF INTERVAL)
     Route: 048
  5. GABAPENTINE [Concomitant]
     Active Substance: GABAPENTIN
     Dosage: 900 MG, DAILY
     Route: 048
  6. ZAVICEFTA [Suspect]
     Active Substance: AVIBACTAM SODIUM\CEFTAZIDIME
     Indication: OSTEITIS
     Dosage: 2 G, 3X/DAY
     Route: 042
     Dates: start: 20200924
  7. DICLOFENAC [Concomitant]
     Active Substance: DICLOFENAC
     Dosage: 100 MG, DAILY
     Route: 048
  8. NEFOPAM HYDROCHLORIDE [Concomitant]
     Active Substance: NEFOPAM HYDROCHLORIDE
     Dosage: 3 DF, DAILY
     Route: 048
  9. ESCITALOPRAM [Concomitant]
     Active Substance: ESCITALOPRAM OXALATE
     Dosage: 20 MG, DAILY
     Route: 048
  10. TRELEGY ELLIPTA [Concomitant]
     Active Substance: FLUTICASONE FUROATE\UMECLIDINIUM BROMIDE\VILANTEROL TRIFENATATE
     Dosage: 1 DF, DAILY
     Route: 048
  11. PARACETAMOL [Concomitant]
     Active Substance: ACETAMINOPHEN
     Dosage: 1 G, 4X/DAY
     Route: 048
  12. FORLAX [Concomitant]
     Active Substance: POLYETHYLENE GLYCOL 4000
     Dosage: UNK
     Route: 048
  13. LANSOYL [Suspect]
     Active Substance: MINERAL OIL
     Dosage: UNK
     Route: 048
  14. IXPRIM [Concomitant]
     Active Substance: ACETAMINOPHEN\TRAMADOL HYDROCHLORIDE
     Dosage: UNK
     Route: 048
  15. FUMAFER [Concomitant]
     Active Substance: FERROUS FUMARATE
     Dosage: UNK, DAILY 3
     Route: 048
  16. AMLODIPINE [Concomitant]
     Active Substance: AMLODIPINE BESYLATE
     Dosage: 5 MG, DAILY
     Route: 048
  17. TIGECYCLINE. [Suspect]
     Active Substance: TIGECYCLINE
     Indication: OSTEITIS
     Dosage: 50 MG, 2X/DAY
     Route: 058
     Dates: start: 20200924, end: 20201129
  18. SERESTA [Concomitant]
     Active Substance: OXAZEPAM
     Dosage: 10 MG, DAILY
     Route: 048

REACTIONS (2)
  - Pancreatitis acute [Fatal]
  - Off label use [Unknown]

NARRATIVE: CASE EVENT DATE: 20200924
